FAERS Safety Report 9782724 (Version 1)
Quarter: 2013Q4

REPORT INFORMATION
  Report Type: Spontaneous
  Country: DE (occurrence: None)
  Receive Date: 20131220
  Receipt Date: 20131220
  Transmission Date: 20140711
  Serious: Yes (Other)
  Sender: FDA-Public Use
  Company Number: 1312-1578

PATIENT
  Age: 82 Year
  Sex: Male

DRUGS (2)
  1. EYLEA [Suspect]
     Dates: start: 20131205
  2. COZAAR [Suspect]
     Indication: HYPERTENSION

REACTIONS (2)
  - Malaise [None]
  - Blood pressure abnormal [None]
